FAERS Safety Report 17711757 (Version 1)
Quarter: 2020Q2

REPORT INFORMATION
  Report Type: Spontaneous
  Country: US (occurrence: US)
  Receive Date: 20200426
  Receipt Date: 20200426
  Transmission Date: 20200714
  Serious: No
  Sender: FDA-Public Use
  Company Number: None

PATIENT

DRUGS (1)
  1. HEADACHE RELIEF EXTRA STRENGTH [Suspect]
     Active Substance: ACETAMINOPHEN\ASPIRIN\CAFFEINE
     Indication: BACK PAIN
     Dosage: ?          QUANTITY:100 TABLET(S);?
     Route: 048
     Dates: start: 20200425, end: 20200425

REACTIONS (4)
  - Abdominal pain upper [None]
  - Product taste abnormal [None]
  - Dizziness [None]
  - Product odour abnormal [None]

NARRATIVE: CASE EVENT DATE: 20200425
